FAERS Safety Report 5315670-3 (Version None)
Quarter: 2007Q2

REPORT INFORMATION
  Report Type: 
  Country: None (occurrence: None)
  Receive Date: 20070503
  Receipt Date: 20070430
  Transmission Date: 20071010
  Serious: Yes (Other)
  Sender: FDA-Public Use
  Company Number: US-GENENTECH-240737

PATIENT
  Age: 51 Year
  Sex: Female

DRUGS (5)
  1. XOLAIR [Suspect]
     Indication: ASTHMA
     Dosage: 150 MG, UNK
     Dates: start: 20070419
  2. ASTELIN [Concomitant]
     Indication: PREMEDICATION
  3. XOPENEX [Concomitant]
     Indication: PREMEDICATION
  4. CLARINEX [Concomitant]
     Indication: PREMEDICATION
  5. ADVAIR DISKUS 100/50 [Concomitant]
     Indication: PREMEDICATION

REACTIONS (1)
  - ANAPHYLACTOID REACTION [None]
